FAERS Safety Report 10763319 (Version 1)
Quarter: 2015Q1

REPORT INFORMATION
  Report Type: Spontaneous
  Country: US (occurrence: US)
  Receive Date: 20150204
  Receipt Date: 20150204
  Transmission Date: 20150721
  Serious: Yes (Hospitalization, Other)
  Sender: FDA-Public Use
  Company Number: US-GLAXOSMITHKLINE-US2015GSK014473

PATIENT
  Age: 23 Year
  Sex: Male

DRUGS (7)
  1. FELBATOL [Suspect]
     Active Substance: FELBAMATE
     Indication: SEIZURE
     Dosage: 900 MG, TID
     Route: 065
  2. KLONOPIN [Suspect]
     Active Substance: CLONAZEPAM
     Indication: SEIZURE
     Dosage: 1 MG, BID
     Route: 065
  3. LAMICTAL [Suspect]
     Active Substance: LAMOTRIGINE
     Indication: SEIZURE
     Dosage: 200 MG, BID
     Route: 065
  4. VIMPAT [Suspect]
     Active Substance: LACOSAMIDE
     Indication: SEIZURE
     Dosage: 200 MG, BID
     Route: 065
  5. DILANTIN [Suspect]
     Active Substance: PHENYTOIN
     Indication: SEIZURE
     Dosage: 100 MG, BID
     Route: 065
  6. KEPPRA [Suspect]
     Active Substance: LEVETIRACETAM
     Indication: SEIZURE
     Dosage: 750 MG, BID
     Route: 065
  7. NEURONTIN [Suspect]
     Active Substance: GABAPENTIN
     Indication: SEIZURE
     Dosage: 600 MG, TID
     Route: 065

REACTIONS (4)
  - Seizure [Unknown]
  - Vagal nerve stimulator implantation [Unknown]
  - Hospitalisation [Recovered/Resolved]
  - Mechanical ventilation [Not Recovered/Not Resolved]

NARRATIVE: CASE EVENT DATE: 201406
